FAERS Safety Report 5875567-7 (Version None)
Quarter: 2008Q3

REPORT INFORMATION
  Report Type: 
  Country: None (occurrence: None)
  Receive Date: 20080909
  Receipt Date: 20080826
  Transmission Date: 20090109
  Serious: Yes (Hospitalization, Other)
  Sender: FDA-Public Use
  Company Number: US-ELI_LILLY_AND_COMPANY-US200808005877

PATIENT
  Sex: Female
  Weight: 74.83 kg

DRUGS (10)
  1. BYETTA [Suspect]
     Indication: TYPE 2 DIABETES MELLITUS
     Dosage: 5 UG, 2/D
     Route: 058
     Dates: start: 20070101, end: 20070101
  2. BYETTA [Suspect]
     Dosage: 10 UG, 2/D
     Route: 058
     Dates: start: 20070101, end: 20070101
  3. BYETTA [Suspect]
     Dosage: 10 UG, 2/D
     Route: 058
     Dates: start: 20070101
  4. BUSPAR [Concomitant]
     Dosage: UNK, 2/D
  5. ELAVIL [Concomitant]
     Dosage: UNK, DAILY (1/D)
  6. AMARYL [Concomitant]
     Dosage: UNK, DAILY (1/D)
     Dates: start: 20080819
  7. PROTONIX [Concomitant]
     Dosage: UNK, DAILY (1/D)
     Dates: start: 20080101
  8. NEBIVOLOL HCL [Concomitant]
     Dosage: UNK, DAILY (1/D)
  9. IRON [Concomitant]
     Dosage: UNK, 2/D
  10. FOSAMAX [Concomitant]
     Dates: end: 20080101

REACTIONS (7)
  - ASTHENIA [None]
  - BLOOD GLUCOSE INCREASED [None]
  - BLOOD PRESSURE INCREASED [None]
  - DYSPHAGIA [None]
  - GASTRIC ULCER [None]
  - HAEMOGLOBIN DECREASED [None]
  - OESOPHAGEAL ULCER [None]
